FAERS Safety Report 17182022 (Version 1)
Quarter: 2019Q4

REPORT INFORMATION
  Report Type: Spontaneous
  Country: GR (occurrence: GR)
  Receive Date: 20191220
  Receipt Date: 20191220
  Transmission Date: 20200122
  Serious: Yes (Life-Threatening)
  Sender: FDA-Public Use
  Company Number: GR-ELI_LILLY_AND_COMPANY-GR201912007788

PATIENT
  Age: 61 Year
  Sex: Female
  Weight: 76 kg

DRUGS (10)
  1. ENIT [Concomitant]
     Active Substance: ENALAPRIL MALEATE\NITRENDIPINE
     Route: 048
  2. TRESIBA [Concomitant]
     Active Substance: INSULIN DEGLUDEC
     Route: 058
  3. JARDIANCE [Concomitant]
     Active Substance: EMPAGLIFLOZIN
     Route: 048
  4. AZAPIN [CARBAMAZEPINE] [Concomitant]
     Route: 048
  5. BERLEX [RABEPRAZOLE SODIUM] [Concomitant]
  6. NORMODIPIN [AMLODIPINE] [Concomitant]
  7. TRULICITY [Suspect]
     Active Substance: DULAGLUTIDE
     Indication: DIABETES MELLITUS
     Route: 058
     Dates: start: 20190312, end: 20191115
  8. SULPIDE [LEVOSULPIRIDE] [Concomitant]
     Indication: MENTAL DISORDER
  9. CLONOTRIL [Concomitant]
     Active Substance: CLONAZEPAM
     Route: 048
  10. LAMICTAL [Concomitant]
     Active Substance: LAMOTRIGINE
     Route: 048

REACTIONS (2)
  - Pancreatitis [Recovered/Resolved]
  - Diabetic ketoacidosis [Recovered/Resolved]

NARRATIVE: CASE EVENT DATE: 20191115
